FAERS Safety Report 13423975 (Version 2)
Quarter: 2017Q2

REPORT INFORMATION
  Report Type: Report from Study
  Country: IT (occurrence: IT)
  Receive Date: 20170410
  Receipt Date: 20170426
  Transmission Date: 20170830
  Serious: Yes (Other)
  Sender: FDA-Public Use
  Company Number: IT-009507513-1703ITA001270

PATIENT
  Age: 74 Year
  Sex: Male

DRUGS (6)
  1. SINEMET [Suspect]
     Active Substance: CARBIDOPA\LEVODOPA
     Indication: PARKINSON^S DISEASE
     Dosage: 1 DOSE UNIT DAILY AT EVENING
     Route: 048
     Dates: start: 20161101, end: 20170118
  2. TERAPROST [Concomitant]
     Route: 048
  3. SINEMET [Suspect]
     Active Substance: CARBIDOPA\LEVODOPA
     Indication: PARKINSON^S DISEASE
     Dosage: 1.5 DOSE UNITS DAILY AT EVENING
     Route: 048
     Dates: start: 20161101, end: 20170118
  4. REQUIP [Suspect]
     Active Substance: ROPINIROLE HYDROCHLORIDE
     Indication: PARKINSON^S DISEASE
     Dosage: 8MG (ONE TABLET), DAILY
     Route: 048
     Dates: start: 20160101, end: 20170118
  5. SAFINAMIDE [Suspect]
     Active Substance: SAFINAMIDE
     Indication: PARKINSON^S DISEASE
     Dosage: 50 MG, DAILY
     Route: 048
     Dates: start: 20160101, end: 20170118
  6. REQUIP [Suspect]
     Active Substance: ROPINIROLE HYDROCHLORIDE
     Dosage: 4 MG, UNK
     Route: 048
     Dates: start: 20170118, end: 20170118

REACTIONS (5)
  - Abnormal behaviour [Recovering/Resolving]
  - Aggression [Recovering/Resolving]
  - Delirium [Recovering/Resolving]
  - Hallucination [Recovering/Resolving]
  - Confusional state [Recovering/Resolving]

NARRATIVE: CASE EVENT DATE: 20170118
